FAERS Safety Report 12644184 (Version 1)
Quarter: 2016Q3

REPORT INFORMATION
  Report Type: Not Available
  Country: FR (occurrence: FR)
  Receive Date: 20160811
  Receipt Date: 20160811
  Transmission Date: 20161109
  Serious: Yes (Hospitalization)
  Sender: FDA-Public Use
  Company Number: FR-SYNTHON BV-NL01PV14.35821

PATIENT
  Age: 35 Year
  Sex: Female

DRUGS (6)
  1. LEVOCITIRIZINE RATIOPHARM [Suspect]
     Active Substance: LEVOCETIRIZINE
     Indication: SEASONAL ALLERGY
     Dosage: 3 MONTHS PER YEAR, AT THE END OF THE YEAR (5 MG, QD)
     Route: 048
     Dates: start: 20130906, end: 20131218
  2. TIGREAT [Concomitant]
     Active Substance: FROVATRIPTAN
     Indication: MIGRAINE
     Dosage: WHEN NEEDED
  3. DIVARIUS [Suspect]
     Active Substance: PAROXETINE MESYLATE
     Dosage: 20 MG, QD (6 TO 8 CONSECUTIVE MONTHS IN 2007)
     Route: 048
     Dates: start: 2007, end: 2007
  4. PAROXETINE ARROW [Suspect]
     Active Substance: PAROXETINE
     Indication: DEPRESSION
     Dosage: 20 MG, QD
     Route: 048
     Dates: start: 20131218, end: 20140206
  5. DIVARIUS [Suspect]
     Active Substance: PAROXETINE MESYLATE
     Indication: DEPRESSION
     Dosage: 20 MG, QD
     Route: 048
     Dates: start: 20130906, end: 20131218
  6. MIRENA [Suspect]
     Active Substance: LEVONORGESTREL
     Indication: CONTRACEPTION
     Dosage: 20 UG, TOTAL
     Route: 067
     Dates: start: 201310, end: 20131230

REACTIONS (2)
  - Thrombotic thrombocytopenic purpura [Unknown]
  - Microangiopathic haemolytic anaemia [Unknown]

NARRATIVE: CASE EVENT DATE: 20131216
